FAERS Safety Report 5476654-8 (Version None)
Quarter: 2007Q4

REPORT INFORMATION
  Report Type: 
  Country: None (occurrence: None)
  Receive Date: 20071001
  Receipt Date: 20070917
  Transmission Date: 20080405
  Serious: Yes (Hospitalization, Disabling)
  Sender: FDA-Public Use
  Company Number: 161686ISR

PATIENT
  Age: 32 Year
  Sex: Female

DRUGS (24)
  1. COPAXONE [Suspect]
     Indication: MULTIPLE SCLEROSIS
     Dosage: 20 MG (20 MG, 1 IN 1 D)
     Route: 058
     Dates: start: 20050929, end: 20051022
  2. PHENYTOIN [Suspect]
     Indication: CONVULSION
     Dosage: 1 GRAM (1 GRAM, 1 IN 1 D) INTRAVENOUS (NOT OTHERWISE SPECIFIED); 300 MG (300 MG, 1 IN 1 D) ORAL
     Route: 042
     Dates: start: 20050916, end: 20050916
  3. PHENYTOIN [Suspect]
     Indication: CONVULSION
     Dosage: 1 GRAM (1 GRAM, 1 IN 1 D) INTRAVENOUS (NOT OTHERWISE SPECIFIED); 300 MG (300 MG, 1 IN 1 D) ORAL
     Route: 042
     Dates: start: 20050917, end: 20050918
  4. PHENYTOIN [Suspect]
     Indication: CONVULSION
     Dosage: 1 GRAM (1 GRAM, 1 IN 1 D) INTRAVENOUS (NOT OTHERWISE SPECIFIED); 300 MG (300 MG, 1 IN 1 D) ORAL
     Route: 042
     Dates: start: 20050920, end: 20050921
  5. FLUOXETINE [Suspect]
     Indication: DEPRESSION
     Dosage: 20 MG (20 MG, 1 IN 1 D)
     Route: 048
     Dates: start: 20050627, end: 20050902
  6. CHLORPROMAZINE [Suspect]
     Indication: DEPRESSION
     Dosage: 50 (50 MG, 1 IN 1 D) INTRAVENOUS (NOT OTHERWISE SPECIFIED)
     Route: 042
     Dates: start: 20050921, end: 20050926
  7. CARBAMAZEPINE [Suspect]
     Indication: CONVULSION
     Dosage: 800 MG (400 MG, 2 IN 1 D)
     Route: 048
     Dates: start: 20050922, end: 20051017
  8. AMITRIPTYLINE HCL [Suspect]
     Indication: DEPRESSION
     Dosage: 50 MG (50 MG, 1 IN 1 D)
     Route: 048
     Dates: start: 20050927, end: 20051012
  9. DIANE [Concomitant]
  10. CAPTOPRIL [Concomitant]
  11. DIAZEPAM [Concomitant]
  12. BELACODID [Concomitant]
  13. PREDNISONE [Concomitant]
  14. DICLOFENAC SODIUM [Concomitant]
  15. SERTRALINE [Concomitant]
  16. CLONAZEPAM [Concomitant]
  17. IBUPROFEN [Concomitant]
  18. PARACETAMOL [Concomitant]
  19. DIMENHYDRINATE [Concomitant]
  20. DIPYRON [Concomitant]
  21. TRAMADOL HCL [Concomitant]
  22. METOCLOPRAMIDE [Concomitant]
  23. RANITIDINE HCL [Concomitant]
  24. SODIUM CHLORIDE [Concomitant]

REACTIONS (7)
  - CHOLESTASIS [None]
  - HEPATIC ENZYME ABNORMAL [None]
  - HEPATIC FUNCTION ABNORMAL [None]
  - HEPATITIS [None]
  - PYODERMA [None]
  - SEPTIC SHOCK [None]
  - STEVENS-JOHNSON SYNDROME [None]
